FAERS Safety Report 5180250-X (Version None)
Quarter: 2006Q4

REPORT INFORMATION
  Report Type: 
  Country: None (occurrence: None)
  Receive Date: 20061219
  Receipt Date: 20060915
  Transmission Date: 20070319
  Serious: No
  Sender: FDA-Public Use
  Company Number: US-AMGEN-KDL193855

PATIENT
  Sex: Female

DRUGS (2)
  1. ENBREL [Suspect]
     Indication: RHEUMATOID ARTHRITIS
     Route: 058
     Dates: start: 20060101
  2. PLAQUENIL [Concomitant]
     Route: 048

REACTIONS (3)
  - BONE PAIN [None]
  - CONDITION AGGRAVATED [None]
  - PRURITUS GENERALISED [None]
